FAERS Safety Report 7598674-X (Version None)
Quarter: 2011Q3

REPORT INFORMATION
  Report Type: 
  Country: None (occurrence: None)
  Receive Date: 20110711
  Receipt Date: 20110701
  Transmission Date: 20111222
  Serious: Yes (Hospitalization, Other)
  Sender: FDA-Public Use
  Company Number: US-BIOGENIDEC-2011BI024203

PATIENT
  Age: 50 Year
  Sex: Female

DRUGS (2)
  1. BACLOFEN [Concomitant]
     Route: 048
  2. TYSABRI [Suspect]
     Indication: MULTIPLE SCLEROSIS
     Route: 042
     Dates: start: 20090414

REACTIONS (2)
  - DRUG DELIVERY DEVICE IMPLANTATION [None]
  - PROCEDURAL COMPLICATION [None]
